FAERS Safety Report 4290613-2 (Version None)
Quarter: 2004Q1

REPORT INFORMATION
  Report Type: 
  Country: None (occurrence: None)
  Receive Date: 20040209
  Receipt Date: 20040126
  Transmission Date: 20041129
  Serious: Yes (Hospitalization)
  Sender: FDA-Public Use
  Company Number: 04P-167-0248941-00

PATIENT
  Age: 75 Year
  Sex: Male
  Weight: 86 kg

DRUGS (5)
  1. ERYTHROMYCIN [Suspect]
     Indication: ABSCESS
     Dosage: 1 TABLET, 3 IN 1 D
     Dates: start: 20010922, end: 20010927
  2. ISOSORBIDE MONONITRATE [Concomitant]
  3. SIMVASTATIN [Concomitant]
  4. ATENOLOL [Concomitant]
  5. TAMOXIFEN [Concomitant]

REACTIONS (1)
  - URINARY RETENTION [None]
